FAERS Safety Report 9157115 (Version 2)
Quarter: 2013Q2

REPORT INFORMATION
  Report Type: Spontaneous
  Country: US (occurrence: US)
  Receive Date: 20130312
  Receipt Date: 20130419
  Transmission Date: 20140414
  Serious: No
  Sender: FDA-Public Use
  Company Number: US-PFIZER INC-2013081114

PATIENT
  Age: 87 Year
  Sex: Female
  Weight: 57 kg

DRUGS (2)
  1. FLECTOR [Suspect]
     Indication: PAIN
     Dosage: UNK
     Dates: start: 20130306
  2. TRAMADOL [Concomitant]
     Indication: PAIN
     Dosage: UNK

REACTIONS (1)
  - Drug ineffective [Unknown]
